FAERS Safety Report 19735811 (Version 2)
Quarter: 2021Q3

REPORT INFORMATION
  Report Type: Report from Study
  Country: DE (occurrence: DE)
  Receive Date: 20210823
  Receipt Date: 20210901
  Transmission Date: 20211014
  Serious: Yes (Hospitalization)
  Sender: FDA-Public Use
  Company Number: DE-ROCHE-2893153

PATIENT
  Age: 49 Year
  Sex: Female
  Weight: 107.5 kg

DRUGS (11)
  1. ATEZOLIZUMAB. [Suspect]
     Active Substance: ATEZOLIZUMAB
     Indication: TRIPLE NEGATIVE BREAST CANCER
     Dosage: DATE OF MOST RECENT DOSE OF ATEZOLIZUMAB PRIOR TO SERIOUS ADVERSE EVENT ONSET ON 28/JUL/2021
     Route: 042
     Dates: start: 20210601
  2. CARBOPLATIN. [Suspect]
     Active Substance: CARBOPLATIN
     Indication: TRIPLE NEGATIVE BREAST CANCER
     Dosage: DATE OF MOST RECENT DOSE OF CARBOPLATIN PRIOR TO SERIOUS ADVERSE EVENT ONSET ON 28/JUL/2021?DATE OF
     Route: 042
     Dates: start: 20210615
  3. PANTOPRAZOL [Concomitant]
     Active Substance: PANTOPRAZOLE SODIUM
     Dates: start: 20210706
  4. TAVEGIL [Concomitant]
     Active Substance: CLEMASTINE FUMARATE
     Dates: start: 20210601
  5. PALONOSETRON. [Concomitant]
     Active Substance: PALONOSETRON HYDROCHLORIDE
     Dosage: 250 UG/5 ML
     Dates: start: 20210720
  6. FILGRASTIM [Concomitant]
     Active Substance: FILGRASTIM
     Dosage: 30 MIE/0.5 ML
     Dates: start: 20210722
  7. DEXAMETHASONE. [Concomitant]
     Active Substance: DEXAMETHASONE
     Dates: start: 20210601
  8. GRANISETRON [Concomitant]
     Active Substance: GRANISETRON
     Dates: start: 20210601
  9. PACLITAXEL. [Suspect]
     Active Substance: PACLITAXEL
     Indication: TRIPLE NEGATIVE BREAST CANCER
     Dosage: DATE OF MOST RECENT DOSE OF PACLITAXEL PRIOR TO SERIOUS ADVERSE EVENT ONSET ON 28/JUL/2021
     Route: 042
     Dates: start: 20210615
  10. MCP [Concomitant]
     Active Substance: METOCLOPRAMIDE HYDROCHLORIDE
     Dates: start: 20210601
  11. CIMETIDIN [Concomitant]
     Dates: start: 20210601

REACTIONS (1)
  - Vascular device infection [Recovered/Resolved]

NARRATIVE: CASE EVENT DATE: 20210728
